FAERS Safety Report 10410525 (Version 2)
Quarter: 2014Q3

REPORT INFORMATION
  Report Type: Spontaneous
  Country: US (occurrence: US)
  Receive Date: 20140826
  Receipt Date: 20140826
  Transmission Date: 20150326
  Serious: No
  Sender: FDA-Public Use
  Company Number: US-BRISTOL-MYERS SQUIBB COMPANY-19226885

PATIENT
  Age: 10 Year
  Sex: Male
  Weight: 32.65 kg

DRUGS (3)
  1. AZITHROMYCIN [Concomitant]
     Active Substance: AZITHROMYCIN ANHYDROUS
     Indication: BITE
  2. KENALOG-40 [Suspect]
     Active Substance: TRIAMCINOLONE ACETONIDE
     Indication: UPPER RESPIRATORY TRACT INFECTION
     Route: 030
     Dates: start: 20130119
  3. KENALOG-40 [Suspect]
     Active Substance: TRIAMCINOLONE ACETONIDE
     Indication: NASOPHARYNGITIS
     Route: 030
     Dates: start: 20130119

REACTIONS (1)
  - Injection site atrophy [Not Recovered/Not Resolved]

NARRATIVE: CASE EVENT DATE: 20130119
